FAERS Safety Report 6400080-8 (Version None)
Quarter: 2009Q4

REPORT INFORMATION
  Report Type: 
  Country: None (occurrence: None)
  Receive Date: 20091014
  Receipt Date: 20091008
  Transmission Date: 20100525
  Serious: Yes (Other)
  Sender: FDA-Public Use
  Company Number: B0567222A

PATIENT
  Sex: Male

DRUGS (6)
  1. LAMICTAL [Suspect]
     Indication: TEMPORAL LOBE EPILEPSY
     Route: 048
     Dates: start: 20090117, end: 20090220
  2. TEGRETOL [Concomitant]
     Indication: EPILEPSY
     Route: 048
  3. ADALAT [Concomitant]
     Indication: ESSENTIAL HYPERTENSION
     Dosage: 40MG PER DAY
     Route: 048
  4. TENORMIN [Concomitant]
     Indication: ESSENTIAL HYPERTENSION
     Dosage: 25MG PER DAY
     Route: 048
  5. ZYPREXA [Concomitant]
     Indication: PSYCHIATRIC SYMPTOM
     Dosage: 10MG PER DAY
     Route: 048
  6. SENNOSIDE [Concomitant]
     Indication: CONSTIPATION
     Dosage: 12MG PER DAY
     Route: 048

REACTIONS (8)
  - AFFECT LABILITY [None]
  - CONFUSIONAL STATE [None]
  - CRYING [None]
  - DEPRESSION [None]
  - EMOTIONAL DISORDER [None]
  - FEELING GUILTY [None]
  - INCOHERENT [None]
  - INSOMNIA [None]
